FAERS Safety Report 25155886 (Version 6)
Quarter: 2025Q2

REPORT INFORMATION
  Report Type: Spontaneous
  Country: US (occurrence: US)
  Receive Date: 20250403
  Receipt Date: 20250617
  Transmission Date: 20250716
  Serious: No
  Sender: PFIZER
  Company Number: US-PFIZER INC-202500060546

PATIENT
  Age: 74 Year
  Sex: Female
  Weight: 77.56 kg

DRUGS (1)
  1. GENOTROPIN [Suspect]
     Active Substance: SOMATROPIN
     Indication: Blood growth hormone
     Dosage: 0.1 MG, DAILY
     Dates: start: 20250331

REACTIONS (4)
  - Device delivery system issue [Unknown]
  - Device leakage [Unknown]
  - Device use issue [Unknown]
  - Product communication issue [Unknown]

NARRATIVE: CASE EVENT DATE: 20250331
